FAERS Safety Report 6463810-5 (Version None)
Quarter: 2009Q4

REPORT INFORMATION
  Report Type: 
  Country: None (occurrence: None)
  Receive Date: 20091201
  Receipt Date: 20091120
  Transmission Date: 20100525
  Serious: Yes (Hospitalization)
  Sender: FDA-Public Use
  Company Number: JP-JNJFOC-20091100476

PATIENT
  Sex: Male

DRUGS (12)
  1. CRAVIT [Suspect]
     Indication: BRONCHITIS
     Route: 048
     Dates: start: 20090928, end: 20091011
  2. BANAN [Suspect]
     Indication: BRONCHITIS
     Route: 048
     Dates: start: 20091002, end: 20091007
  3. FLOMOX [Suspect]
     Indication: BRONCHITIS
     Route: 048
     Dates: start: 20091013, end: 20091016
  4. ASTOMIN [Suspect]
     Indication: BRONCHITIS
     Route: 048
     Dates: start: 20090928, end: 20091017
  5. SAWATENE [Suspect]
     Indication: BRONCHITIS
     Route: 048
     Dates: start: 20091002, end: 20091007
  6. RESPLEN [Suspect]
     Indication: BRONCHITIS
     Route: 048
     Dates: start: 20090928, end: 20091017
  7. PELEX [Suspect]
     Indication: OROPHARYNGEAL PAIN
     Route: 048
     Dates: start: 20090928, end: 20091001
  8. ASTHPHYLLIN [Suspect]
     Indication: BRONCHITIS
     Route: 048
     Dates: start: 20091002, end: 20091007
  9. DIHYDROCODEINE PHOSPHATE [Concomitant]
     Indication: ANTITUSSIVE THERAPY
     Route: 048
     Dates: start: 20091001, end: 20091001
  10. GLORIAMIN [Concomitant]
     Indication: GASTRITIS
     Route: 048
     Dates: start: 20090928, end: 20091020
  11. PYDOXAL [Concomitant]
     Indication: VITAMIN B6 DEFICIENCY
     Route: 048
     Dates: start: 20090928, end: 20091020
  12. FLAVITAN [Concomitant]
     Indication: VITAMIN B6 DEFICIENCY
     Route: 048
     Dates: start: 20090928, end: 20091020

REACTIONS (1)
  - INTERSTITIAL LUNG DISEASE [None]
